FAERS Safety Report 4688247-0 (Version None)
Quarter: 2005Q2

REPORT INFORMATION
  Report Type: 
  Country: None (occurrence: None)
  Receive Date: 20050610
  Receipt Date: 19970106
  Transmission Date: 20051028
  Serious: Yes (Hospitalization, Other)
  Sender: FDA-Public Use
  Company Number: US-AMGEN-208974

PATIENT
  Sex: Female

DRUGS (6)
  1. EPOGEN [Suspect]
     Indication: DIALYSIS
     Route: 042
     Dates: start: 19970101, end: 19970102
  2. GENTAMICIN SULFATE [Concomitant]
  3. VANCOMYCIN HYDROCHLORIDE [Concomitant]
  4. CALCIUM GLUCONATE [Concomitant]
     Dates: start: 19931012
  5. FERROUS SULFATE [Concomitant]
     Dates: start: 19940207
  6. VITAMIN B COMPLEX CAP [Concomitant]
     Dates: start: 19940207

REACTIONS (8)
  - ANTI-ERYTHROPOIETIN ANTIBODY POSITIVE [None]
  - ARTERIOVENOUS FISTULA SITE INFECTION [None]
  - DRUG HYPERSENSITIVITY [None]
  - HAEMATOCRIT DECREASED [None]
  - HYPERSENSITIVITY [None]
  - PRURITUS [None]
  - RASH [None]
  - RASH MORBILLIFORM [None]
